FAERS Safety Report 5636367-6 (Version None)
Quarter: 2008Q1

REPORT INFORMATION
  Report Type: 
  Country: None (occurrence: None)
  Receive Date: 20080225
  Receipt Date: 20071030
  Transmission Date: 20080703
  Serious: No
  Sender: FDA-Public Use
  Company Number: A0690584A

PATIENT
  Age: 77 Year
  Sex: Female

DRUGS (3)
  1. VERAMYST [Suspect]
     Dosage: 2PUFF PER DAY
     Route: 045
     Dates: start: 20071029
  2. ZYRTEC [Concomitant]
  3. ZOCOR [Concomitant]

REACTIONS (1)
  - PAIN [None]
